FAERS Safety Report 8759813 (Version 1)
Quarter: 2012Q4

REPORT INFORMATION
  Report Type: 
  Country: TR (occurrence: TR)
  Receive Date: 20120829
  Receipt Date: 20120829
  Transmission Date: 20130627
  Serious: Yes (Hospitalization)
  Sender: FDA-Public Use
  Company Number: TR-NOVEN-12TR005185

PATIENT
  Age: 34 Year
  Sex: Female

DRUGS (1)
  1. PAROXETINE [Suspect]
     Indication: DEPRESSION
     Dosage: 20 mg, qd
     Route: 065

REACTIONS (8)
  - Drug-induced liver injury [Unknown]
  - Hepatomegaly [Unknown]
  - Alanine aminotransferase increased [Recovered/Resolved]
  - Aspartate aminotransferase increased [Recovered/Resolved]
  - Blood alkaline phosphatase increased [Recovered/Resolved]
  - Hepatitis B surface antibody positive [Unknown]
  - Alpha-1 anti-trypsin increased [Unknown]
  - Asthenia [Unknown]
